FAERS Safety Report 9995808 (Version 1)
Quarter: 2014Q1

REPORT INFORMATION
  Report Type: Spontaneous
  Country: US (occurrence: US)
  Receive Date: 20140311
  Receipt Date: 20140311
  Transmission Date: 20141002
  Serious: Yes (Hospitalization)
  Sender: FDA-Public Use
  Company Number: US-BAYER-2014-034911

PATIENT
  Age: 34 Year
  Sex: Female
  Weight: 79 kg

DRUGS (3)
  1. YAZ [Suspect]
  2. NEXIUM [Concomitant]
  3. COLAZAL [Concomitant]

REACTIONS (2)
  - Vertebral artery occlusion [None]
  - Intracranial venous sinus thrombosis [None]
